FAERS Safety Report 10542817 (Version 1)
Quarter: 2014Q4

REPORT INFORMATION
  Report Type: Spontaneous
  Country: US (occurrence: None)
  Receive Date: 20141023
  Receipt Date: 20141023
  Transmission Date: 20150529
  Serious: Yes (Other)
  Sender: FDA-Public Use
  Company Number: None

PATIENT
  Age: 38 Year
  Sex: Female
  Weight: 58.97 kg

DRUGS (3)
  1. ZUBSOLV [Suspect]
     Active Substance: BUPRENORPHINE HYDROCHLORIDE\NALOXONE HYDROCHLORIDE
     Indication: DRUG DEPENDENCE
     Dosage: 1 TAB, TID, SUBLINGUAL?
     Route: 060
     Dates: start: 20141008, end: 20141022
  2. ALPRAZOLAM. [Concomitant]
     Active Substance: ALPRAZOLAM
  3. CAFFEINE TABLETS [Concomitant]

REACTIONS (8)
  - Vomiting [None]
  - Somnolence [None]
  - Myalgia [None]
  - Hyperhidrosis [None]
  - Chills [None]
  - Dizziness [None]
  - Orthostatic hypotension [None]
  - Nausea [None]

NARRATIVE: CASE EVENT DATE: 20141022
